FAERS Safety Report 14152515 (Version 2)
Quarter: 2017Q4

REPORT INFORMATION
  Report Type: Spontaneous
  Country: US (occurrence: US)
  Receive Date: 20171102
  Receipt Date: 20171122
  Transmission Date: 20180321
  Serious: Yes (Other)
  Sender: FDA-Public Use
  Company Number: US-PIERREL PHARMA S.P.A.-2017PIR00025

PATIENT
  Age: 39 Year
  Sex: Female
  Weight: 54.42 kg

DRUGS (2)
  1. ORABLOC [Suspect]
     Active Substance: ARTICAINE HYDROCHLORIDE\EPINEPHRINE BITARTRATE
     Indication: TOOTH REPAIR
     Dosage: 4 DOSAGE UNITS, ONCE
     Dates: start: 20170929, end: 20170929
  2. UNSPECIFIED TOPICAL PRODUCT [Suspect]
     Active Substance: UNSPECIFIED INGREDIENT

REACTIONS (6)
  - Oral mucosal exfoliation [Unknown]
  - Oral mucosal blistering [Recovered/Resolved]
  - Cheilitis [Unknown]
  - Gingival discolouration [Recovered/Resolved]
  - Soft tissue necrosis [Unknown]
  - Gingival recession [Not Recovered/Not Resolved]

NARRATIVE: CASE EVENT DATE: 2017
